FAERS Safety Report 10447010 (Version 1)
Quarter: 2014Q3

REPORT INFORMATION
  Report Type: Spontaneous
  Country: US (occurrence: None)
  Receive Date: 20140910
  Receipt Date: 20140910
  Transmission Date: 20150326
  Serious: No
  Sender: FDA-Public Use
  Company Number: None

PATIENT
  Age: 48 Year
  Sex: Male
  Weight: 113 kg

DRUGS (1)
  1. DEFINITY [Suspect]
     Active Substance: PERFLUTREN
     Indication: STRESS ECHOCARDIOGRAM
     Route: 042
     Dates: start: 20140908, end: 20140908

REACTIONS (2)
  - Back pain [None]
  - Contrast media reaction [None]

NARRATIVE: CASE EVENT DATE: 20140908
